FAERS Safety Report 18954326 (Version 1)
Quarter: 2021Q1

REPORT INFORMATION
  Report Type: Report from Study
  Country: None (occurrence: BR)
  Receive Date: 20210301
  Receipt Date: 20210301
  Transmission Date: 20210420
  Serious: Yes (Other)
  Sender: FDA-Public Use
  Company Number: BR-ABBVIE-21K-020-3793449-00

PATIENT
  Sex: Female
  Weight: 64 kg

DRUGS (3)
  1. COGLIVE [Concomitant]
     Indication: DEMENTIA ALZHEIMER^S TYPE
     Dosage: UNSPECIFIED DOSE
     Dates: start: 202002
  2. VICOG [Concomitant]
     Active Substance: VINPOCETINE
     Indication: DEMENTIA ALZHEIMER^S TYPE
     Dosage: UNSPECIFIED DOSE
     Dates: start: 202002
  3. HUMIRA [Suspect]
     Active Substance: ADALIMUMAB
     Indication: RHEUMATOID ARTHRITIS
     Route: 058
     Dates: start: 20170101

REACTIONS (1)
  - Dementia Alzheimer^s type [Unknown]
